FAERS Safety Report 10437827 (Version 1)
Quarter: 2014Q3

REPORT INFORMATION
  Report Type: Spontaneous
  Country: US (occurrence: US)
  Receive Date: 20140908
  Receipt Date: 20140908
  Transmission Date: 20150326
  Serious: Yes (Other)
  Sender: FDA-Public Use
  Company Number: US-BRISTOL-MYERS SQUIBB COMPANY-20510970

PATIENT
  Age: 6 Decade
  Sex: Female

DRUGS (3)
  1. ZYPREXA [Concomitant]
     Active Substance: OLANZAPINE
  2. SEROQUEL [Concomitant]
     Active Substance: QUETIAPINE FUMARATE
  3. ABILIFY [Suspect]
     Active Substance: ARIPIPRAZOLE

REACTIONS (3)
  - Decreased appetite [Unknown]
  - Weight decreased [Recovering/Resolving]
  - Abdominal pain [Unknown]
